FAERS Safety Report 15854698 (Version 1)
Quarter: 2019Q1

REPORT INFORMATION
  Report Type: Other
  Country: GB (occurrence: GB)
  Receive Date: 20190122
  Receipt Date: 20190122
  Transmission Date: 20190417
  Serious: Yes (Other)
  Sender: FDA-Public Use
  Company Number: GB-DENTSPLY-2019SCDP000022

PATIENT
  Age: 84 Year
  Sex: Male

DRUGS (3)
  1. LIDOCAINE. [Suspect]
     Active Substance: LIDOCAINE
     Indication: LOCAL ANAESTHESIA
     Dosage: 6 ML, INJECTION
     Route: 045
  2. BUPIVACAINE                        /00330102/ [Suspect]
     Active Substance: BUPIVACAINE
     Indication: LOCAL ANAESTHESIA
     Dosage: 6 ML OF A MIXTURE OF LIGNOCAINE (2%) AND BUPIVACAINE (0.75%), INJECTED INFERO-NASALLY
     Route: 045
  3. ATENOLOL. [Concomitant]
     Active Substance: ATENOLOL
     Indication: HYPERTENSION
     Dosage: 50 MG, QD

REACTIONS (2)
  - Optic atrophy [Recovered/Resolved]
  - Retinal artery occlusion [Recovered/Resolved]
